FAERS Safety Report 10159522 (Version 1)
Quarter: 2014Q2

REPORT INFORMATION
  Report Type: Spontaneous
  Country: US (occurrence: None)
  Receive Date: 20140506
  Receipt Date: 20140506
  Transmission Date: 20141212
  Serious: Yes (Death)
  Sender: FDA-Public Use
  Company Number: 2014P1003539

PATIENT
  Age: 49 Year
  Sex: Female

DRUGS (4)
  1. FENTANYL [Suspect]
  2. GABAPENTIN [Concomitant]
  3. HYDROCODONE [Concomitant]
  4. METHADONE [Concomitant]

REACTIONS (1)
  - Accidental overdose [None]
